FAERS Safety Report 14462931 (Version 1)
Quarter: 2018Q1

REPORT INFORMATION
  Report Type: Spontaneous
  Country: DE (occurrence: DE)
  Receive Date: 20180130
  Receipt Date: 20180130
  Transmission Date: 20180509
  Serious: Yes (Death, Life-Threatening)
  Sender: FDA-Public Use
  Company Number: DE-TEVA-2018-DE-849890

PATIENT
  Age: 66 Year
  Sex: Male
  Weight: 75 kg

DRUGS (5)
  1. 5 FLUOROURACIL [Suspect]
     Active Substance: FLUOROURACIL
     Indication: SMALL INTESTINE ADENOCARCINOMA
     Route: 040
     Dates: start: 20161122, end: 20170314
  2. AXINOTECAN 20 MG/ML CONCENTRATE FOR SOLUTION FOR INFUSION [Suspect]
     Active Substance: IRINOTECAN HYDROCHLORIDE
     Indication: SMALL INTESTINE ADENOCARCINOMA
     Route: 065
     Dates: start: 20161122, end: 20170314
  3. BEVACIZUMAB. [Suspect]
     Active Substance: BEVACIZUMAB
     Indication: SMALL INTESTINE ADENOCARCINOMA
     Route: 065
     Dates: start: 20161122, end: 20170314
  4. FOLINIC ACID [Suspect]
     Active Substance: LEUCOVORIN
     Indication: SMALL INTESTINE ADENOCARCINOMA
     Route: 065
     Dates: start: 20161122, end: 20170314
  5. 5 FLUOROURACIL [Suspect]
     Active Substance: FLUOROURACIL
     Route: 041
     Dates: start: 20161122, end: 20170314

REACTIONS (3)
  - Neoplasm progression [None]
  - Intestinal adenocarcinoma [None]
  - Death [Fatal]

NARRATIVE: CASE EVENT DATE: 20170328
